FAERS Safety Report 4865297-2 (Version None)
Quarter: 2005Q4

REPORT INFORMATION
  Report Type: 
  Country: None (occurrence: None)
  Receive Date: 20051223
  Receipt Date: 20051219
  Transmission Date: 20060501
  Serious: Yes (Life-Threatening, Hospitalization)
  Sender: FDA-Public Use
  Company Number: 2005GB02457

PATIENT
  Sex: Male
  Weight: 80 kg

DRUGS (9)
  1. MARCAINE [Suspect]
     Indication: SEDATION
     Route: 042
     Dates: start: 20051129, end: 20051129
  2. MARCAINE [Suspect]
     Indication: TRANSURETHRAL PROSTATECTOMY
     Route: 042
     Dates: start: 20051129, end: 20051129
  3. MIDAZOLAM HYDROCHLORIDE [Suspect]
     Indication: SEDATION
     Route: 042
     Dates: start: 20051129, end: 20051129
  4. MIDAZOLAM HYDROCHLORIDE [Suspect]
     Indication: TRANSURETHRAL PROSTATECTOMY
     Route: 042
     Dates: start: 20051129, end: 20051129
  5. GENTAMICIN [Suspect]
     Indication: INFECTION PROPHYLAXIS
     Route: 065
     Dates: start: 20051129, end: 20051129
  6. AMPICILLIN SODIUM [Suspect]
     Indication: INFECTION PROPHYLAXIS
     Route: 065
     Dates: start: 20051129, end: 20051129
  7. GLYCINE HCL [Suspect]
     Route: 042
     Dates: start: 20051129, end: 20051129
  8. ATENOLOL [Concomitant]
     Indication: HYPERTENSION
     Route: 048
     Dates: start: 20051018
  9. PERINDOPRIL [Concomitant]
     Route: 048

REACTIONS (2)
  - ANGIONEUROTIC OEDEMA [None]
  - DISSEMINATED INTRAVASCULAR COAGULATION [None]
